FAERS Safety Report 9402741 (Version 7)
Quarter: 2014Q2

REPORT INFORMATION
  Report Type: Report from Study
  Country: BE (occurrence: BE)
  Receive Date: 20130716
  Receipt Date: 20140430
  Transmission Date: 20141212
  Serious: Yes (Hospitalization)
  Sender: FDA-Public Use
  Company Number: BE-ROCHE-1245425

PATIENT
  Age: 79 Year
  Sex: Female
  Weight: 45.5 kg

DRUGS (9)
  1. TRASTUZUMAB EMTANSINE [Suspect]
     Indication: BREAST CANCER METASTATIC
     Dosage: LAST DOSE PRIOR TO ADVERSE EVENT: 18/JUN/2013.
     Route: 042
     Dates: start: 20130319
  2. EMCONCOR [Concomitant]
     Route: 065
     Dates: start: 1990
  3. PAROXETINE [Concomitant]
     Route: 065
     Dates: start: 1995
  4. CLEXANE [Concomitant]
     Route: 065
     Dates: start: 20130101
  5. STEOCAR [Concomitant]
     Route: 065
     Dates: start: 20130416
  6. DAFALGAN [Concomitant]
     Route: 065
     Dates: start: 20130422
  7. LITICAN [Concomitant]
     Route: 065
     Dates: start: 20130612
  8. ZALDIAR [Concomitant]
     Route: 065
     Dates: start: 20130616
  9. D-CURE [Concomitant]
     Route: 065
     Dates: start: 20090309

REACTIONS (1)
  - Sepsis [Recovered/Resolved]
